FAERS Safety Report 16222641 (Version 4)
Quarter: 2020Q1

REPORT INFORMATION
  Report Type: Spontaneous
  Country: US (occurrence: US)
  Receive Date: 20190422
  Receipt Date: 20200106
  Transmission Date: 20200409
  Serious: Yes (Other)
  Sender: FDA-Public Use
  Company Number: US-PFIZER INC-2019165560

PATIENT
  Age: 61 Year
  Sex: Female
  Weight: 73 kg

DRUGS (3)
  1. IBRANCE [Suspect]
     Active Substance: PALBOCICLIB
     Dosage: 125 MG, CYCLIC (1 CAP QD FOR 21 DAYS ON, 7 DAYS OFF)
     Route: 048
     Dates: start: 20190321
  2. IBRANCE [Suspect]
     Active Substance: PALBOCICLIB
     Dosage: 125 MG, CYCLIC (QD D1-21 Q28 DAYS)
     Route: 048
  3. IBRANCE [Suspect]
     Active Substance: PALBOCICLIB
     Indication: BREAST CANCER FEMALE
     Dosage: 125 MG, CYCLIC [D1-21, Q 28 DAYS]
     Route: 048
     Dates: start: 20190221

REACTIONS (6)
  - Pain in extremity [Unknown]
  - Incision site erythema [Unknown]
  - Mobility decreased [Unknown]
  - Nausea [Recovered/Resolved]
  - White blood cell count decreased [Unknown]
  - Limb discomfort [Unknown]

NARRATIVE: CASE EVENT DATE: 2019
